FAERS Safety Report 7531162-5 (Version None)
Quarter: 2011Q2

REPORT INFORMATION
  Report Type: 
  Country: None (occurrence: None)
  Receive Date: 20110608
  Receipt Date: 20110526
  Transmission Date: 20111010
  Serious: Yes (Hospitalization, Other)
  Sender: FDA-Public Use
  Company Number: CA-BAYER-2011-045531

PATIENT
  Age: 18 Year
  Sex: Female
  Weight: 70 kg

DRUGS (1)
  1. YASMIN [Suspect]
     Dosage: 1 DF, QD
     Route: 048

REACTIONS (11)
  - WEIGHT INCREASED [None]
  - HYPOAESTHESIA [None]
  - MOOD SWINGS [None]
  - SYNCOPE [None]
  - VISUAL IMPAIRMENT [None]
  - MOVEMENT DISORDER [None]
  - ASTHENIA [None]
  - BLINDNESS [None]
  - DEPRESSION [None]
  - DIZZINESS [None]
  - HEADACHE [None]
